FAERS Safety Report 6727746-4 (Version None)
Quarter: 2010Q2

REPORT INFORMATION
  Report Type: 
  Country: None (occurrence: None)
  Receive Date: 20100512
  Receipt Date: 20100428
  Transmission Date: 20101027
  Serious: Yes (Hospitalization, Other)
  Sender: FDA-Public Use
  Company Number: JP-JNJFOC-20090903581

PATIENT
  Age: 68 Year
  Sex: Male
  Weight: 58 kg

DRUGS (15)
  1. DECITABINE             (DECITABINE) LYOPHILIZED POWDER [Suspect]
     Indication: MYELODYSPLASTIC SYNDROME
     Dosage: 31 MG 1 IN 1 D, INTRAVENOUS
     Dates: start: 20090729, end: 20090802
  2. AMPHOTERICIN B [Suspect]
     Indication: PNEUMONIA FUNGAL
     Dosage: INTRAVENOUS DRIP
     Route: 041
     Dates: start: 20090828
  3. VANCOMYCIN HYDROCHLORIDE [Suspect]
     Indication: DRUG USE FOR UNKNOWN INDICATION
  4. NEUTROGIN (LENOGRASTIM) [Concomitant]
  5. PAZUCROSS (PAZUFLOXACIN) [Concomitant]
  6. CLINDAMYCIN HCL [Concomitant]
  7. FAMOTIDINE [Concomitant]
  8. RECOMODULIN (TREPROSTINIL) [Concomitant]
  9. ZYVOX [Concomitant]
  10. ROPION (FLURBIPROFEN AXETIL) [Concomitant]
  11. LASIX [Concomitant]
  12. AZUNOL (SODIUM GUALENATE) [Concomitant]
  13. XYLOCAINE [Concomitant]
  14. VITAJECT [Concomitant]
  15. ELEMENMIC (ELEMEAL) [Concomitant]

REACTIONS (15)
  - CELLULITIS ORBITAL [None]
  - CHOKING [None]
  - CONDITION AGGRAVATED [None]
  - DISSEMINATED INTRAVASCULAR COAGULATION [None]
  - EYELID OEDEMA [None]
  - FEBRILE NEUTROPENIA [None]
  - HAEMOPTYSIS [None]
  - LIVER FUNCTION TEST ABNORMAL [None]
  - LOCAL SWELLING [None]
  - PERICARDIAL EFFUSION [None]
  - PLEURAL EFFUSION [None]
  - PNEUMONIA FUNGAL [None]
  - PULMONARY HYPERTENSION [None]
  - PYREXIA [None]
  - WEIGHT DECREASED [None]
